FAERS Safety Report 4488721-6 (Version None)
Quarter: 2004Q4

REPORT INFORMATION
  Report Type: 
  Country: None (occurrence: None)
  Receive Date: 20041025
  Receipt Date: 20041012
  Transmission Date: 20050328
  Serious: Yes (Hospitalization, Other)
  Sender: FDA-Public Use
  Company Number: 2004066071

PATIENT
  Age: 56 Year
  Sex: Female
  Weight: 62 kg

DRUGS (4)
  1. SULPERAZON (CEFOPERAZONE, SULBACTAM) [Suspect]
     Indication: PNEUMONIA
     Dosage: 1 GRAM (1 D), INTRAVENOUS
     Route: 042
     Dates: start: 20040603, end: 20040603
  2. POTACOL-R (CALCIUM CHLORIDE ANHYDROUS, MALTOSE, POTASSIUM CHLORIDE, SO [Concomitant]
  3. TIMEPIDIUM BROMIDE (TIMEPIDIUM BROMIDE) [Concomitant]
  4. CILNIDIPINE (CILNIDIPINE) [Concomitant]

REACTIONS (3)
  - ANAPHYLACTOID REACTION [None]
  - BLOOD PRESSURE SYSTOLIC INCREASED [None]
  - PLATELET COUNT ABNORMAL [None]
